FAERS Safety Report 7004450-9 (Version None)
Quarter: 2010Q3

REPORT INFORMATION
  Report Type: 
  Country: None (occurrence: None)
  Receive Date: 20100921
  Receipt Date: 20100910
  Transmission Date: 20110219
  Serious: No
  Sender: FDA-Public Use
  Company Number: US-BIOGENIDEC-2010BI032021

PATIENT
  Sex: Female

DRUGS (1)
  1. TYSABRI [Suspect]
     Indication: MULTIPLE SCLEROSIS
     Route: 042
     Dates: start: 20091101

REACTIONS (10)
  - ABDOMINAL DISCOMFORT [None]
  - CHEST DISCOMFORT [None]
  - CHEST PAIN [None]
  - COLLAPSE OF LUNG [None]
  - GASTROOESOPHAGEAL REFLUX DISEASE [None]
  - OESOPHAGITIS [None]
  - PNEUMONIA [None]
  - RASH [None]
  - TOOTH DISORDER [None]
  - TOOTHACHE [None]
